FAERS Safety Report 4430259-6 (Version None)
Quarter: 2004Q3

REPORT INFORMATION
  Report Type: 
  Country: None (occurrence: None)
  Receive Date: 20040820
  Receipt Date: 20040809
  Transmission Date: 20050211
  Serious: Yes (Death)
  Sender: FDA-Public Use
  Company Number: GB-GLAXOSMITHKLINE-B0342141A

PATIENT
  Age: 9 Year
  Sex: Female
  Weight: 25 kg

DRUGS (5)
  1. AMOXICILLIN AND CLAVULANATE POTASSIUM [Suspect]
     Indication: PNEUMONIA
     Dosage: 750MG SINGLE DOSE
     Route: 042
  2. ALBUTEROL SULFATE [Concomitant]
     Indication: ASTHMA
     Dosage: 2.5MG PER DAY
     Route: 055
     Dates: start: 20040411, end: 20040412
  3. IPATROPIUM BROMIDE [Concomitant]
     Indication: ASTHMA
     Dosage: 500MCG PER DAY
     Route: 065
     Dates: start: 20040411, end: 20040412
  4. PREDNISOLONE [Concomitant]
     Indication: ASTHMA
     Dosage: 40MG PER DAY
     Route: 048
     Dates: start: 20040411, end: 20040412
  5. AMINOPHYLLINE [Concomitant]
     Indication: ASTHMA
     Route: 042
     Dates: start: 20040411, end: 20040412

REACTIONS (1)
  - ANAPHYLACTIC REACTION [None]
